FAERS Safety Report 7690787-7 (Version None)
Quarter: 2011Q3

REPORT INFORMATION
  Report Type: 
  Country: None (occurrence: None)
  Receive Date: 20110818
  Receipt Date: 20110809
  Transmission Date: 20111222
  Serious: Yes (Other)
  Sender: FDA-Public Use
  Company Number: TW-SANOFI-AVENTIS-2011SA051338

PATIENT
  Age: 31 Year
  Sex: Male

DRUGS (4)
  1. AVASTIN [Suspect]
     Route: 042
     Dates: start: 20110101, end: 20110701
  2. LEUCOVORIN CALCIUM [Suspect]
     Route: 042
     Dates: start: 20110101, end: 20110701
  3. FLUOROURACIL [Suspect]
     Route: 042
     Dates: start: 20110101, end: 20110701
  4. OXALIPLATIN [Suspect]
     Route: 042
     Dates: start: 20110101, end: 20110701

REACTIONS (2)
  - NEOPLASM MALIGNANT [None]
  - PNEUMOTHORAX [None]
